FAERS Safety Report 17064025 (Version 1)
Quarter: 2019Q4

REPORT INFORMATION
  Report Type: Spontaneous
  Country: US (occurrence: US)
  Receive Date: 20191023
  Receipt Date: 20191023
  Transmission Date: 20200122
  Serious: Yes (Life-Threatening, Other)
  Sender: FDA-Public Use
  Company Number: None

PATIENT
  Age: 69 Year
  Sex: Female
  Weight: 68.04 kg

DRUGS (12)
  1. GRAVIOLA [Concomitant]
  2. MAGNESIUM [Concomitant]
     Active Substance: MAGNESIUM
  3. B6 [Concomitant]
     Active Substance: PYRIDOXINE HYDROCHLORIDE
  4. LUTEIN [Concomitant]
     Active Substance: LUTEIN
  5. ALOE BARDADENSIS [Concomitant]
  6. VITAMS - SMARTCAPS [Concomitant]
  7. DMAE [Concomitant]
  8. AFREZZA [Suspect]
     Active Substance: INSULIN HUMAN
     Indication: DIABETES MELLITUS
     Dosage: ?          QUANTITY:12 IU INTERNATIONAL UNIT(S);?
     Route: 055
  9. A AND D NOS [Concomitant]
     Active Substance: DIMETHICONE\ZINC OXIDE OR PETROLATUM
  10. DR. COLBERT M.D. THYROID ZONE [Concomitant]
  11. TOUJEO MAX [Suspect]
     Active Substance: INSULIN GLARGINE
     Indication: DIABETES MELLITUS
     Dosage: ?          QUANTITY:50 IU INTERNATIONAL UNIT(S);?
     Route: 058
  12. DR. COLBERT M.D. HORMONE ZONE [Concomitant]

REACTIONS (1)
  - Hypersensitivity [None]

NARRATIVE: CASE EVENT DATE: 20191006
